FAERS Safety Report 15329984 (Version 2)
Quarter: 2018Q4

REPORT INFORMATION
  Report Type: Report from Study
  Country: GB (occurrence: GB)
  Receive Date: 20180829
  Receipt Date: 20181015
  Transmission Date: 20190204
  Serious: Yes (Other)
  Sender: FDA-Public Use
  Company Number: PHHY2017GB170986

PATIENT
  Sex: Female

DRUGS (3)
  1. ERELZI [Suspect]
     Active Substance: ETANERCEPT-SZZS
     Dosage: 25 MG, BIW (PRE-FILLED SYRINGE)
     Route: 058
     Dates: start: 20171107
  2. ERELZI [Suspect]
     Active Substance: ETANERCEPT-SZZS
     Indication: RHEUMATOID ARTHRITIS
     Dosage: UNK
     Route: 058
     Dates: start: 2007
  3. ERELZI [Suspect]
     Active Substance: ETANERCEPT-SZZS
     Dosage: 25 MG, UNK (PRE-FILLED SYRINGE)
     Route: 058

REACTIONS (6)
  - Rash [Unknown]
  - Urine abnormality [Unknown]
  - Urinary tract infection [Recovered/Resolved]
  - Urine odour abnormal [Unknown]
  - Product design issue [Unknown]
  - Injection site pain [Not Recovered/Not Resolved]
